FAERS Safety Report 5053501-X (Version None)
Quarter: 2006Q3

REPORT INFORMATION
  Report Type: 
  Country: None (occurrence: None)
  Receive Date: 20060712
  Receipt Date: 20060622
  Transmission Date: 20061208
  Serious: Yes (Hospitalization)
  Sender: FDA-Public Use
  Company Number: FR200606004940

PATIENT
  Age: 78 Year
  Sex: Female

DRUGS (3)
  1. PROZAC [Suspect]
     Indication: DEPRESSION
     Dosage: 20 MG, 2/D, ORAL
     Route: 048
  2. TEMESTA (LORAZEPAM) TABLET, ENTERIC COATED [Concomitant]
  3. LEVOTHYROXINE SODIUM [Concomitant]

REACTIONS (11)
  - BLOOD IMMUNOGLOBULIN E INCREASED [None]
  - BLOOD LACTATE DEHYDROGENASE INCREASED [None]
  - DRUG RESISTANCE [None]
  - ECZEMA [None]
  - GAMMA-GLUTAMYLTRANSFERASE INCREASED [None]
  - HYPOPROTEINAEMIA [None]
  - IRON DEFICIENCY [None]
  - MYCOSIS FUNGOIDES [None]
  - NEUROPATHY [None]
  - NORMOCHROMIC NORMOCYTIC ANAEMIA [None]
  - RENAL FAILURE [None]
